FAERS Safety Report 6817972-8 (Version None)
Quarter: 2010Q3

REPORT INFORMATION
  Report Type: 
  Country: None (occurrence: None)
  Receive Date: 20100706
  Receipt Date: 20100625
  Transmission Date: 20110219
  Serious: Yes (Hospitalization)
  Sender: FDA-Public Use
  Company Number: CA-AMGEN-KDC420659

PATIENT
  Sex: Male

DRUGS (4)
  1. DENOSUMAB [Suspect]
     Indication: METASTASES TO BONE
     Route: 058
     Dates: start: 20100310
  2. TAXOTERE [Suspect]
     Route: 042
     Dates: start: 20100511
  3. PREDNISOLON [Concomitant]
     Route: 048
     Dates: start: 20100511
  4. COUMADIN [Concomitant]

REACTIONS (3)
  - BODY TEMPERATURE INCREASED [None]
  - DYSPNOEA [None]
  - INTERSTITIAL LUNG DISEASE [None]
